FAERS Safety Report 9607592 (Version 3)
Quarter: 2013Q4

REPORT INFORMATION
  Report Type: Spontaneous
  Country: US (occurrence: US)
  Receive Date: 20131009
  Receipt Date: 20131204
  Transmission Date: 20140711
  Serious: Yes (Hospitalization, Other)
  Sender: FDA-Public Use
  Company Number: PHEH2013US020579

PATIENT
  Sex: Male

DRUGS (6)
  1. DIOVAN HCT [Suspect]
     Dosage: 1 DF (320MG VALS/ 25MG HYDR), QD
     Route: 048
     Dates: start: 201302, end: 201303
  2. DIOVAN HCT [Suspect]
     Dosage: 1 DF (320 MG VALS/ 12.5 MG HCTZ), UNK
     Route: 048
     Dates: start: 201305
  3. HYDROCHLOROTHIAZIDE,VALSARTAN [Suspect]
     Dosage: 1 DF (320MG VALS/ 25MG HYDR), QD
     Route: 048
     Dates: start: 201303, end: 201305
  4. FENOFIBRATE [Concomitant]
     Dosage: 130 MG, UNK
  5. NEXIUM//ESOMEPRAZOLE MAGNESIUM [Concomitant]
  6. VITAMINS NOS [Concomitant]

REACTIONS (7)
  - Exostosis [Unknown]
  - Carpal tunnel syndrome [Unknown]
  - Weight decreased [Recovering/Resolving]
  - Swollen tongue [Unknown]
  - Fluid retention [Unknown]
  - Joint swelling [Unknown]
  - Blood pressure increased [Unknown]
